FAERS Safety Report 24760824 (Version 1)
Quarter: 2024Q4

REPORT INFORMATION
  Report Type: Spontaneous
  Country: ES (occurrence: ES)
  Receive Date: 20241220
  Receipt Date: 20241220
  Transmission Date: 20250115
  Serious: Yes (Death, Other)
  Sender: AMGEN
  Company Number: ES-AMGEN-ESPSP2024245847

PATIENT

DRUGS (1)
  1. XGEVA [Suspect]
     Active Substance: DENOSUMAB
     Indication: Metastases to bone
     Dosage: UNK
     Route: 065

REACTIONS (8)
  - Death [Fatal]
  - Thyroid cancer [Fatal]
  - Osteonecrosis of jaw [Unknown]
  - Spinal cord compression [Unknown]
  - Tooth loss [Unknown]
  - Hypocalcaemia [Unknown]
  - Fracture [Unknown]
  - Hypercalcaemia [Unknown]
